FAERS Safety Report 8375271-X (Version None)
Quarter: 2012Q2

REPORT INFORMATION
  Report Type: 
  Country: None (occurrence: None)
  Receive Date: 20120522
  Receipt Date: 20120514
  Transmission Date: 20120825
  Serious: Yes (Hospitalization)
  Sender: FDA-Public Use
  Company Number: US-BIOGENIDEC-2011BI037876

PATIENT
  Age: 49 Year
  Sex: Female

DRUGS (3)
  1. AVONEX [Suspect]
     Indication: MULTIPLE SCLEROSIS
     Route: 030
     Dates: start: 20000101, end: 20030101
  2. AVONEX [Suspect]
     Route: 030
     Dates: start: 20111028
  3. AVONEX [Suspect]
     Route: 030
     Dates: start: 20030101, end: 20110819

REACTIONS (3)
  - MYOCARDIAL INFARCTION [None]
  - FEAR OF NEEDLES [None]
  - INJECTION SITE REACTION [None]
